FAERS Safety Report 8443851-9 (Version None)
Quarter: 2012Q2

REPORT INFORMATION
  Report Type: 
  Country: None (occurrence: None)
  Receive Date: 20120618
  Receipt Date: 20120608
  Transmission Date: 20120825
  Serious: Yes (Hospitalization)
  Sender: FDA-Public Use
  Company Number: US-US-EMD SERONO, INC.-7139475

PATIENT
  Sex: Male

DRUGS (2)
  1. ACETAMINOPHEN [Concomitant]
     Indication: PREMEDICATION
  2. REBIF [Suspect]
     Indication: MULTIPLE SCLEROSIS
     Route: 058
     Dates: start: 20070720

REACTIONS (9)
  - INTESTINAL OBSTRUCTION [None]
  - FALL [None]
  - LOWER LIMB FRACTURE [None]
  - BACK PAIN [None]
  - ROAD TRAFFIC ACCIDENT [None]
  - ASTHENIA [None]
  - MUSCULOSKELETAL STIFFNESS [None]
  - WEIGHT DECREASED [None]
  - GLYCOSYLATED HAEMOGLOBIN INCREASED [None]
